FAERS Safety Report 23036013 (Version 1)
Quarter: 2023Q4

REPORT INFORMATION
  Report Type: Report from Study
  Country: GB (occurrence: GB)
  Receive Date: 20231006
  Receipt Date: 20231006
  Transmission Date: 20240110
  Serious: Yes (Death, Hospitalization)
  Sender: FDA-Public Use
  Company Number: GB-BoehringerIngelheim-2021-BI-111522

PATIENT
  Age: 68 Year
  Sex: Female
  Weight: 64 kg

DRUGS (1)
  1. ALTEPLASE [Suspect]
     Active Substance: ALTEPLASE
     Indication: Ischaemic stroke
     Dosage: FREQUENCY ONCE
     Route: 042
     Dates: start: 20210619

REACTIONS (2)
  - Cerebral haematoma [Fatal]
  - Hydrocephalus [Fatal]

NARRATIVE: CASE EVENT DATE: 20210619
